FAERS Safety Report 21121323 (Version 5)
Quarter: 2023Q1

REPORT INFORMATION
  Report Type: Spontaneous
  Country: US (occurrence: US)
  Receive Date: 20220722
  Receipt Date: 20230321
  Transmission Date: 20230418
  Serious: Yes (Life-Threatening, Other)
  Sender: FDA-Public Use
  Company Number: US-PFIZER INC-202200846002

PATIENT
  Age: 63 Year
  Sex: Female

DRUGS (6)
  1. XELJANZ [Suspect]
     Active Substance: TOFACITINIB CITRATE
     Indication: Idiopathic urticaria
     Dosage: 5 MG
  2. XELJANZ [Suspect]
     Active Substance: TOFACITINIB CITRATE
     Indication: Ankylosing spondylitis
     Dosage: 10 MG
  3. XELJANZ [Suspect]
     Active Substance: TOFACITINIB CITRATE
     Indication: Bone disorder
  4. XELJANZ [Suspect]
     Active Substance: TOFACITINIB CITRATE
     Indication: Arthralgia
  5. XELJANZ [Suspect]
     Active Substance: TOFACITINIB CITRATE
     Indication: Swelling
  6. KETOPROFEN [Concomitant]
     Active Substance: KETOPROFEN
     Dosage: UNK

REACTIONS (5)
  - Near death experience [Unknown]
  - Drug effective for unapproved indication [Unknown]
  - Off label use [Unknown]
  - Illness [Unknown]
  - Blood cholesterol increased [Unknown]

NARRATIVE: CASE EVENT DATE: 20190101
